FAERS Safety Report 5750834-6 (Version None)
Quarter: 2008Q2

REPORT INFORMATION
  Report Type: 
  Country: None (occurrence: None)
  Receive Date: 20080528
  Receipt Date: 20080523
  Transmission Date: 20081010
  Serious: Yes (Hospitalization)
  Sender: FDA-Public Use
  Company Number: B0501925A

PATIENT
  Age: 75 Year
  Sex: Female
  Weight: 53 kg

DRUGS (20)
  1. REQUIP [Suspect]
     Indication: PARKINSON'S DISEASE
     Dosage: .75MG PER DAY
     Route: 048
     Dates: start: 20070912, end: 20070919
  2. REQUIP [Suspect]
     Dosage: 1.5MG PER DAY
     Route: 048
     Dates: start: 20070919, end: 20070926
  3. REQUIP [Suspect]
     Dosage: 2.25MG PER DAY
     Route: 048
     Dates: start: 20070926, end: 20071003
  4. REQUIP [Suspect]
     Dosage: 3MG PER DAY
     Route: 048
     Dates: start: 20071003, end: 20071010
  5. REQUIP [Suspect]
     Dosage: 4.5MG PER DAY
     Route: 048
     Dates: start: 20071010, end: 20071017
  6. REQUIP [Suspect]
     Dosage: 6MG PER DAY
     Route: 048
     Dates: start: 20071017, end: 20071024
  7. REQUIP [Suspect]
     Dosage: 7.5MG PER DAY
     Route: 048
     Dates: start: 20071024, end: 20071031
  8. REQUIP [Suspect]
     Dosage: 9MG PER DAY
     Route: 048
     Dates: start: 20071031, end: 20071107
  9. REQUIP [Suspect]
     Dosage: 10.5MG PER DAY
     Route: 048
     Dates: start: 20071107, end: 20071205
  10. REQUIP [Suspect]
     Dosage: 12MG PER DAY
     Route: 048
     Dates: start: 20071205
  11. EC DOPARL [Concomitant]
     Indication: PARKINSON'S DISEASE
     Dosage: 300MG PER DAY
     Route: 048
  12. ONEALFA [Concomitant]
     Indication: OSTEOPOROSIS
     Dosage: .5MCG PER DAY
     Route: 048
     Dates: start: 20071226
  13. SELTOUCH [Concomitant]
     Dosage: 1PAT AS REQUIRED
     Route: 062
     Dates: start: 20071231
  14. ELCITONIN [Concomitant]
     Indication: OSTEOPOROSIS
     Dosage: 1AMP AS REQUIRED
     Route: 030
     Dates: start: 20080109, end: 20080124
  15. DEPAS [Concomitant]
     Route: 048
  16. MAGLAX [Concomitant]
     Route: 048
  17. FORSENID [Concomitant]
     Route: 048
  18. ADOFEED [Concomitant]
     Route: 062
  19. CABASER [Concomitant]
     Indication: PARKINSON'S DISEASE
     Dosage: .25MG PER DAY
     Dates: end: 20071012
  20. LAXOBERON [Concomitant]
     Indication: DRUG USE FOR UNKNOWN INDICATION
     Route: 048
     Dates: start: 20071231

REACTIONS (2)
  - BACK PAIN [None]
  - SPINAL COMPRESSION FRACTURE [None]
